FAERS Safety Report 8354901-2 (Version None)
Quarter: 2012Q2

REPORT INFORMATION
  Report Type: 
  Country: None (occurrence: None)
  Receive Date: 20120511
  Receipt Date: 20120504
  Transmission Date: 20120825
  Serious: Yes (Hospitalization)
  Sender: FDA-Public Use
  Company Number: IT-JNJFOC-20120206201

PATIENT
  Sex: Male
  Weight: 120 kg

DRUGS (2)
  1. PALIPERIDONE [Suspect]
  2. PALIPERIDONE [Suspect]
     Indication: SCHIZOPHRENIA
     Dates: start: 20120109

REACTIONS (1)
  - SCHIZOPHRENIA [None]
